FAERS Safety Report 12653473 (Version 1)
Quarter: 2016Q3

REPORT INFORMATION
  Report Type: Spontaneous
  Country: GB (occurrence: GB)
  Receive Date: 20160815
  Receipt Date: 20160815
  Transmission Date: 20161109
  Serious: Yes (Other)
  Sender: FDA-Public Use
  Company Number: GB-ACTAVISPR-2016-17062

PATIENT
  Sex: Female

DRUGS (2)
  1. DIAZEPAM (UNKNOWN) [Suspect]
     Active Substance: DIAZEPAM
     Dosage: UNK, OVERDOSES EVERY WEEK
     Route: 065
  2. DIAZEPAM (UNKNOWN) [Suspect]
     Active Substance: DIAZEPAM
     Indication: PERINATAL DEPRESSION
     Dosage: 5 MG, TID
     Route: 048

REACTIONS (11)
  - Insomnia [Unknown]
  - Withdrawal syndrome [Unknown]
  - Fatigue [Unknown]
  - Overdose [Unknown]
  - Drug dependence [Unknown]
  - Bipolar disorder [Unknown]
  - Psychotic disorder [Unknown]
  - Suicidal ideation [Unknown]
  - Nasal discomfort [Unknown]
  - Hyperhidrosis [Unknown]
  - Weight increased [Unknown]
